FAERS Safety Report 4492212-6 (Version None)
Quarter: 2004Q4

REPORT INFORMATION
  Report Type: 
  Country: None (occurrence: None)
  Receive Date: 20041101
  Receipt Date: 20041018
  Transmission Date: 20050328
  Serious: Yes (Death, Hospitalization)
  Sender: FDA-Public Use
  Company Number: MEDI-0002297

PATIENT
  Age: 1 Month
  Sex: Male
  Weight: 2.7 kg

DRUGS (3)
  1. SYNAGIS [Suspect]
     Indication: ANTIVIRAL PROPHYLAXIS
     Dosage: 42 MG, 1 IN 30 D, INTRAMUSCULAR
     Route: 030
     Dates: start: 20041008, end: 20041008
  2. SYNAGIS [Suspect]
     Indication: PREMATURE BABY
     Dosage: 42 MG, 1 IN 30 D, INTRAMUSCULAR
     Route: 030
     Dates: start: 20041008, end: 20041008
  3. IRON (IRON) [Concomitant]

REACTIONS (2)
  - BRAIN DEATH [None]
  - SUDDEN INFANT DEATH SYNDROME [None]
